FAERS Safety Report 6397465-5 (Version None)
Quarter: 2009Q4

REPORT INFORMATION
  Report Type: 
  Country: None (occurrence: None)
  Receive Date: 20091012
  Receipt Date: 20091008
  Transmission Date: 20100525
  Serious: Yes (Life-Threatening, Hospitalization, Other)
  Sender: FDA-Public Use
  Company Number: PHEH2008US11382

PATIENT
  Sex: Male
  Weight: 101.59 kg

DRUGS (6)
  1. GLEEVEC [Suspect]
     Indication: CHRONIC MYELOID LEUKAEMIA
     Dosage: 400 MG, QD
     Route: 048
     Dates: start: 20071001
  2. SYNTHROID [Concomitant]
     Dosage: 175 MCG QD
  3. FLOMAX [Concomitant]
     Dosage: 0.4 MG, QD
  4. TRAZODONE [Concomitant]
     Dosage: 50 MG, QD
  5. PEPCID [Concomitant]
  6. LISINOPRIL [Concomitant]
     Dosage: 2 MG, UNK
     Route: 048

REACTIONS (14)
  - ANGIOPLASTY [None]
  - BLOOD PRESSURE INCREASED [None]
  - CHEST PAIN [None]
  - CORONARY ARTERY OCCLUSION [None]
  - ECHOCARDIOGRAM ABNORMAL [None]
  - EJECTION FRACTION ABNORMAL [None]
  - ELECTROCARDIOGRAM ST SEGMENT ELEVATION [None]
  - HYPERHIDROSIS [None]
  - MITRAL VALVE INCOMPETENCE [None]
  - MYOCARDIAL INFARCTION [None]
  - SINUS BRADYCARDIA [None]
  - STENT PLACEMENT [None]
  - TRICUSPID VALVE INCOMPETENCE [None]
  - TROPONIN INCREASED [None]
